FAERS Safety Report 4941925-8 (Version None)
Quarter: 2006Q1

REPORT INFORMATION
  Report Type: 
  Country: None (occurrence: None)
  Receive Date: 20060313
  Receipt Date: 20060302
  Transmission Date: 20060701
  Serious: Yes (Hospitalization, Other)
  Sender: FDA-Public Use
  Company Number: US-MERCK-0603USA00823

PATIENT
  Age: 52 Year
  Sex: Male
  Weight: 95 kg

DRUGS (2)
  1. VIOXX [Suspect]
     Indication: PAIN MANAGEMENT
     Route: 048
     Dates: start: 20000101, end: 20010201
  2. VIOXX [Suspect]
     Indication: ARTHRITIS
     Route: 048
     Dates: start: 20000101, end: 20010201

REACTIONS (6)
  - ABDOMINAL PAIN [None]
  - BURNS THIRD DEGREE [None]
  - CHEST PAIN [None]
  - MYOCARDIAL INFARCTION [None]
  - PYREXIA [None]
  - ROAD TRAFFIC ACCIDENT [None]
